FAERS Safety Report 24427804 (Version 2)
Quarter: 2024Q4

REPORT INFORMATION
  Report Type: Spontaneous
  Country: US (occurrence: US)
  Receive Date: 20241011
  Receipt Date: 20241017
  Transmission Date: 20250115
  Serious: Yes (Other)
  Sender: SANOFI AVENTIS
  Company Number: US-SANOFI-02232242

PATIENT
  Age: 65 Year
  Sex: Female

DRUGS (4)
  1. LANTUS [Suspect]
     Active Substance: INSULIN GLARGINE
     Indication: Type 2 diabetes mellitus
     Dosage: 100 U, QD
  2. LANTUS [Suspect]
     Active Substance: INSULIN GLARGINE
     Dosage: 33 U, QD
  3. LANTUS [Suspect]
     Active Substance: INSULIN GLARGINE
     Dosage: 38 U, QD
  4. METFORMIN [Concomitant]
     Active Substance: METFORMIN HYDROCHLORIDE

REACTIONS (5)
  - Diabetes mellitus inadequate control [Recovering/Resolving]
  - Hyperhidrosis [Unknown]
  - Product dose omission issue [Unknown]
  - Device use issue [Unknown]
  - Inappropriate schedule of product administration [Unknown]

NARRATIVE: CASE EVENT DATE: 20240801
